FAERS Safety Report 8434486-2 (Version None)
Quarter: 2012Q2

REPORT INFORMATION
  Report Type: 
  Country: None (occurrence: None)
  Receive Date: 20120614
  Receipt Date: 20120606
  Transmission Date: 20120825
  Serious: Yes (Hospitalization)
  Sender: FDA-Public Use
  Company Number: US-BIOGENIDEC-2012BI020057

PATIENT
  Age: 59 Year
  Sex: Female

DRUGS (2)
  1. AVONEX [Suspect]
     Indication: MULTIPLE SCLEROSIS
     Route: 030
     Dates: start: 20020822, end: 20030101
  2. AVONEX [Suspect]
     Route: 030
     Dates: start: 20030101, end: 20120512

REACTIONS (9)
  - LOSS OF CONSCIOUSNESS [None]
  - VAGINAL HAEMORRHAGE [None]
  - PYREXIA [None]
  - POST PROCEDURAL HAEMORRHAGE [None]
  - HAEMOGLOBIN DECREASED [None]
  - SKIN DISCOLOURATION [None]
  - HEADACHE [None]
  - ENDOMETRIAL CANCER [None]
  - PROCEDURAL VOMITING [None]
